FAERS Safety Report 5060699-6 (Version None)
Quarter: 2006Q3

REPORT INFORMATION
  Report Type: 
  Country: None (occurrence: None)
  Receive Date: 20060720
  Receipt Date: 20060720
  Transmission Date: 20061208
  Serious: Yes (Death, Hospitalization)
  Sender: FDA-Public Use
  Company Number: None

PATIENT
  Sex: Female
  Weight: 12 kg

DRUGS (1)
  1. METHOTREXATE [Suspect]

REACTIONS (27)
  - ABDOMINAL PAIN [None]
  - ACTIVATED PARTIAL THROMBOPLASTIN TIME PROLONGED [None]
  - AGITATION [None]
  - ATELECTASIS [None]
  - BRAIN HERNIATION [None]
  - BRAIN OEDEMA [None]
  - CEREBELLAR INFARCTION [None]
  - CEREBRAL DISORDER [None]
  - CEREBRAL HAEMORRHAGE [None]
  - CEREBRAL INFARCTION [None]
  - COAGULOPATHY [None]
  - DIARRHOEA [None]
  - ELECTROENCEPHALOGRAM ABNORMAL [None]
  - FALL [None]
  - FEBRILE NEUTROPENIA [None]
  - FIBRIN D DIMER INCREASED [None]
  - HEAD INJURY [None]
  - INTRACRANIAL VENOUS SINUS THROMBOSIS [None]
  - LETHARGY [None]
  - PLATELET COUNT DECREASED [None]
  - PNEUMONIA [None]
  - PROCEDURAL SITE REACTION [None]
  - PROTHROMBIN TIME PROLONGED [None]
  - SOMNOLENCE [None]
  - SUBARACHNOID HAEMORRHAGE [None]
  - SUBDURAL HAEMATOMA [None]
  - UNRESPONSIVE TO STIMULI [None]
